FAERS Safety Report 26160533 (Version 1)
Quarter: 2025Q4

REPORT INFORMATION
  Report Type: Spontaneous
  Country: EU (occurrence: EU)
  Receive Date: 20251216
  Receipt Date: 20251216
  Transmission Date: 20260118
  Serious: Yes (Other)
  Sender: SAMSUNG BIOEPIS
  Company Number: EU-SAMSUNG BIOEPIS-SB-2025-41347

PATIENT

DRUGS (3)
  1. ECULIZUMAB [Suspect]
     Active Substance: ECULIZUMAB
     Indication: Myasthenia gravis
     Dosage: INDUCTION PHASE CONSISTED OF FOUR WEEKLY AND CONSECUTIVE IV DOSES OF 900 MG. THE MAINTENANCE PHASE C
     Route: 042
  2. ECULIZUMAB [Suspect]
     Active Substance: ECULIZUMAB
     Dosage: INDUCTION PHASE CONSISTED OF FOUR WEEKLY AND CONSECUTIVE IV DOSES OF 900 MG. THE MAINTENANCE PHASE C
     Route: 042
  3. PREDNISONE [Concomitant]
     Active Substance: PREDNISONE
     Indication: Product used for unknown indication
     Dosage: THE MEAN DAILY DOSE OF PREDNISONE AT WEEK 34 WAS 18.13 ? 22.10 MG FOR PATIENTS RECEIVING ECULIZUMAB;

REACTIONS (3)
  - Myasthenia gravis [Unknown]
  - Drug ineffective for unapproved indication [Unknown]
  - Off label use [Unknown]
